FAERS Safety Report 4906380-2 (Version None)
Quarter: 2006Q1

REPORT INFORMATION
  Report Type: 
  Country: None (occurrence: None)
  Receive Date: 20060209
  Receipt Date: 20051122
  Transmission Date: 20060701
  Serious: Yes (Hospitalization)
  Sender: FDA-Public Use
  Company Number: US-AMGEN-US158829

PATIENT
  Sex: Female

DRUGS (3)
  1. ENBREL [Suspect]
     Indication: RHEUMATOID ARTHRITIS
     Dates: start: 20041006, end: 20051101
  2. METHOTREXATE [Concomitant]
     Dates: start: 20011201, end: 20051101
  3. ARAVA [Concomitant]
     Dates: start: 20011001, end: 20051101

REACTIONS (8)
  - BACTERAEMIA [None]
  - BACTERIAL INFECTION [None]
  - BRAIN ABSCESS [None]
  - CONVULSION [None]
  - FUSOBACTERIUM INFECTION [None]
  - GRAND MAL CONVULSION [None]
  - MENTAL STATUS CHANGES [None]
  - PEPTOSTREPTOCOCCUS INFECTION [None]
